FAERS Safety Report 10080839 (Version 1)
Quarter: 2014Q2

REPORT INFORMATION
  Report Type: Spontaneous
  Country: US (occurrence: None)
  Receive Date: 20140414
  Receipt Date: 20140414
  Transmission Date: 20141212
  Serious: Yes (Hospitalization)
  Sender: FDA-Public Use
  Company Number: HYP201402-000012

PATIENT
  Age: 63 Year
  Sex: Male
  Weight: 118.84 kg

DRUGS (17)
  1. RAVICTI (GLYCEROL PHENYLBUTYRATE) ORAL LIQUID [Suspect]
     Indication: AMINO ACID METABOLISM DISORDER
     Route: 048
     Dates: start: 201402
  2. PHENOBARBITAL [Concomitant]
  3. PANTOPRAZOLE [Concomitant]
  4. FERROUS SULFATE [Concomitant]
  5. LEVOTHYROXINE [Concomitant]
  6. ZENPEP [Concomitant]
  7. ERGOCALCIFEROL [Concomitant]
  8. RIFAXIMIN [Concomitant]
  9. LACTULOSE [Concomitant]
  10. POTASSIUM CHLORIDE [Concomitant]
  11. INSULIN [Concomitant]
  12. FOLIC ACID [Concomitant]
  13. PRAMIPEXOLE [Concomitant]
  14. FUROSEMIDE [Concomitant]
  15. LIDOCAINE [Concomitant]
  16. MICONAZOLE NITRATE [Concomitant]
  17. METOLAZONE [Concomitant]

REACTIONS (6)
  - Generalised oedema [None]
  - Ammonia increased [None]
  - Blood creatinine increased [None]
  - Asthenia [None]
  - Weight increased [None]
  - Oedema [None]
